FAERS Safety Report 5029940-X (Version None)
Quarter: 2006Q2

REPORT INFORMATION
  Report Type: 
  Country: None (occurrence: None)
  Receive Date: 20060620
  Receipt Date: 20060609
  Transmission Date: 20061013
  Serious: Yes (Other)
  Sender: FDA-Public Use
  Company Number: NLGE0002198

PATIENT
  Age: 37 Year
  Sex: Female

DRUGS (7)
  1. COMBIVIR [Suspect]
     Indication: HIV INFECTION
     Route: 048
     Dates: start: 20060322
  2. ZAPONEX [Suspect]
     Indication: SCHIZOPHRENIA
     Dosage: 200MG TWICE PER DAY
     Route: 048
     Dates: start: 20041217
  3. CLOZAPINE [Suspect]
     Route: 048
     Dates: start: 20031009, end: 20041216
  4. NEVIRAPINE [Suspect]
     Indication: HIV INFECTION
     Dosage: 200MG PER DAY
     Route: 048
     Dates: start: 20060322
  5. LITHIUM CARBONATE [Suspect]
     Indication: NEUTROPENIA
     Dosage: 600MG PER DAY
     Route: 048
  6. PREDNISOLONE [Concomitant]
     Indication: PROPHYLAXIS
     Dosage: 400MG TWICE PER DAY
     Dates: start: 20060322
  7. AMISULPRIDE [Concomitant]
     Indication: SCHIZOPHRENIA
     Dosage: 200MG TWICE PER DAY

REACTIONS (1)
  - NEUTROPENIA [None]
